FAERS Safety Report 9156652 (Version 1)
Quarter: 2013Q1

REPORT INFORMATION
  Report Type: Spontaneous
  Country: BR (occurrence: None)
  Receive Date: 20130206
  Receipt Date: 20130206
  Transmission Date: 20140127
  Serious: Yes (Other)
  Sender: FDA-Public Use
  Company Number: DSU-2013-01015

PATIENT
  Age: 81 Year
  Sex: Female
  Weight: 80 kg

DRUGS (4)
  1. OLMETEC (OLMESARTAN MEDOXOMIL) (40 MILLIGRAM, TABLET) (OLMESARTAN MEDOXOMIL) [Suspect]
     Indication: HYPERTENSION
     Dosage: 80 MG (40 MG, BID), PER ORAL
     Route: 048
     Dates: start: 2010
  2. CALTRATE [Suspect]
     Indication: RHEUMATIC DISORDER
     Dates: start: 201212
  3. LEVOID (LEVOTHYROXINE SODIUM) (LEVOTHYROXINE SODIUM) [Concomitant]
  4. RETEMIC (OXYBUTYNIN HYDROCHLORIDE) (OXYBUTYNIN HYDROCHLORIDE) [Concomitant]

REACTIONS (8)
  - Thyroid disorder [None]
  - Hepatic neoplasm [None]
  - Dizziness [None]
  - Malaise [None]
  - Dysentery [None]
  - Furuncle [None]
  - Drug hypersensitivity [None]
  - Expired drug administered [None]
